FAERS Safety Report 6282674-6 (Version None)
Quarter: 2009Q3

REPORT INFORMATION
  Report Type: 
  Country: None (occurrence: None)
  Receive Date: 20090724
  Receipt Date: 20090721
  Transmission Date: 20100115
  Serious: Yes (Death)
  Sender: FDA-Public Use
  Company Number: PHHY2009GB23354

PATIENT
  Sex: Male

DRUGS (4)
  1. CLOZARIL [Suspect]
     Indication: SCHIZOPHRENIA
     Dosage: 475MG DAILY
     Route: 048
     Dates: start: 20060508
  2. ZOPICLONE [Concomitant]
     Indication: INSOMNIA
     Dosage: 7.5 MG, DAILY
     Route: 048
  3. HYOSCINE HBR HYT [Concomitant]
     Indication: DRY MOUTH
     Dosage: 300 MG, TID
     Route: 048
     Dates: start: 20060727
  4. EYE DROPS [Concomitant]
     Indication: GLAUCOMA
     Dosage: DAILY

REACTIONS (3)
  - DEATH [None]
  - DRY MOUTH [None]
  - SEXUAL DYSFUNCTION [None]
